FAERS Safety Report 19246023 (Version 2)
Quarter: 2021Q3

REPORT INFORMATION
  Report Type: Report from Study
  Country: US (occurrence: US)
  Receive Date: 20210512
  Receipt Date: 20210713
  Transmission Date: 20211014
  Serious: No
  Sender: FDA-Public Use
  Company Number: NVSC2021US106594

PATIENT
  Sex: Female

DRUGS (1)
  1. TASIGNA [Suspect]
     Active Substance: NILOTINIB
     Indication: PHILADELPHIA POSITIVE CHRONIC MYELOID LEUKAEMIA
     Dosage: 300 MG, BID
     Route: 048

REACTIONS (1)
  - Weight decreased [Recovering/Resolving]
